FAERS Safety Report 13086284 (Version 2)
Quarter: 2017Q2

REPORT INFORMATION
  Report Type: Spontaneous
  Country: US (occurrence: US)
  Receive Date: 20170104
  Receipt Date: 20170404
  Transmission Date: 20170830
  Serious: No
  Sender: FDA-Public Use
  Company Number: US-ALLERGAN-1677762US

PATIENT
  Age: 24 Year
  Sex: Male

DRUGS (1)
  1. VRAYLAR [Suspect]
     Active Substance: CARIPRAZINE
     Indication: SCHIZOPHRENIA
     Dosage: 1.5 MG, QD
     Route: 048

REACTIONS (2)
  - Tremor [Not Recovered/Not Resolved]
  - Restlessness [Unknown]
